FAERS Safety Report 15091009 (Version 1)
Quarter: 2018Q2

REPORT INFORMATION
  Report Type: Spontaneous
  Country: US (occurrence: US)
  Receive Date: 20180629
  Receipt Date: 20180629
  Transmission Date: 20180711
  Serious: No
  Sender: FDA-Public Use
  Company Number: US-AMGEN-USASP2014077003

PATIENT
  Sex: Female

DRUGS (2)
  1. TAMOXIFEN [Concomitant]
     Active Substance: TAMOXIFEN
     Dosage: 20 MG
  2. PROLIA [Suspect]
     Active Substance: DENOSUMAB
     Indication: PRODUCT USED FOR UNKNOWN INDICATION
     Dosage: UNK
     Route: 065
     Dates: start: 2011

REACTIONS (1)
  - Bone density abnormal [Recovering/Resolving]
